FAERS Safety Report 11162479 (Version 1)
Quarter: 2015Q2

REPORT INFORMATION
  Report Type: Spontaneous
  Country: US (occurrence: None)
  Receive Date: 20150603
  Receipt Date: 20150603
  Transmission Date: 20150821
  Serious: Yes (Other)
  Sender: FDA-Public Use
  Company Number: None

PATIENT
  Age: 40 Year
  Sex: Female

DRUGS (1)
  1. LARIAM [Suspect]
     Active Substance: MEFLOQUINE HYDROCHLORIDE
     Indication: MALARIA PROPHYLAXIS
     Dosage: SUMMER 1994
     Route: 048

REACTIONS (9)
  - Depression [None]
  - Panic attack [None]
  - Disturbance in attention [None]
  - Anxiety [None]
  - Phobia of flying [None]
  - Fibromyalgia [None]
  - Job dissatisfaction [None]
  - Amnesia [None]
  - Cognitive disorder [None]

NARRATIVE: CASE EVENT DATE: 1997
